FAERS Safety Report 20890317 (Version 1)
Quarter: 2022Q2

REPORT INFORMATION
  Report Type: Spontaneous
  Country: CA (occurrence: CA)
  Receive Date: 20220530
  Receipt Date: 20220530
  Transmission Date: 20220721
  Serious: Yes (Life-Threatening, Hospitalization, Other)
  Sender: FDA-Public Use
  Company Number: None

PATIENT
  Age: 60 Year
  Sex: Female
  Weight: 42 kg

DRUGS (13)
  1. FLUOROURACIL [Suspect]
     Active Substance: FLUOROURACIL
     Indication: Squamous cell carcinoma
     Dosage: ONCE
     Route: 042
  2. MITOMYCIN [Suspect]
     Active Substance: MITOMYCIN
     Indication: Product used for unknown indication
     Dosage: ONCE
     Route: 042
  3. ACETAMINOPHEN [Concomitant]
     Active Substance: ACETAMINOPHEN
  4. ENOXAPARIN [Concomitant]
     Active Substance: ENOXAPARIN
  5. HALOPERIDOL [Concomitant]
     Active Substance: HALOPERIDOL
  6. LIDOCAINE [Concomitant]
     Active Substance: LIDOCAINE
  7. METOCLOPRAMIDE [Concomitant]
     Active Substance: METOCLOPRAMIDE
  8. MORPHINE [Concomitant]
     Active Substance: MORPHINE
  9. NYSTATIN [Concomitant]
     Active Substance: NYSTATIN
  10. ONDANSETRON [Concomitant]
     Active Substance: ONDANSETRON
  11. SODIUM BICARBONATE [Concomitant]
     Active Substance: SODIUM BICARBONATE
  12. SODIUM CHLORIDE [Concomitant]
     Active Substance: SODIUM CHLORIDE
  13. DIBUCAINE\ESCULIN\HYDROCORTISONE\NEOMYCIN [Concomitant]
     Active Substance: DIBUCAINE\ESCULIN\HYDROCORTISONE\NEOMYCIN

REACTIONS (2)
  - Febrile neutropenia [Recovering/Resolving]
  - Off label use [Unknown]
